FAERS Safety Report 15234912 (Version 1)
Quarter: 2018Q3

REPORT INFORMATION
  Report Type: Spontaneous
  Country: US (occurrence: US)
  Receive Date: 20180803
  Receipt Date: 20180803
  Transmission Date: 20181010
  Serious: Yes (Other)
  Sender: FDA-Public Use
  Company Number: US-ACCORD-065007

PATIENT
  Age: 61 Year
  Sex: Female
  Weight: 85.28 kg

DRUGS (8)
  1. LEVOTHYROXINE. [Concomitant]
     Active Substance: LEVOTHYROXINE
     Dosage: STRENGTH: 0.1 MG
     Route: 048
     Dates: start: 200505
  2. DOCETAXEL ACCORD [Suspect]
     Active Substance: DOCETAXEL
     Indication: BREAST CANCER
     Dosage: NUMBER OF CYCLES: 05??DOSAGE: 135 MG TO 109 MG
     Dates: start: 20151113, end: 20160318
  3. PARAPLATIN [Suspect]
     Active Substance: CARBOPLATIN
     Indication: BREAST CANCER
  4. HYDROCODONE BITARTRATE/PARACETAMOL [Concomitant]
     Indication: PAIN
     Dosage: STRENGTH: 7.5?325 MG
     Route: 048
     Dates: start: 2000
  5. HYDROCHLOROTHIAZIDE. [Concomitant]
     Active Substance: HYDROCHLOROTHIAZIDE
     Dosage: STRENGTH: 25 MG
     Route: 048
     Dates: start: 2000
  6. PROCHLORPERAZINE. [Concomitant]
     Active Substance: PROCHLORPERAZINE
     Indication: NAUSEA
     Dosage: STRENGTH: 10 MG
     Route: 048
     Dates: start: 2000
  7. PRAVASTATIN. [Concomitant]
     Active Substance: PRAVASTATIN
     Dosage: STRENGTH: 40 MG
     Dates: start: 201401
  8. LIDOCAINE/PRILOCAINE [Concomitant]
     Dosage: 2.5%?2.5%
     Route: 061
     Dates: start: 2000

REACTIONS (1)
  - Alopecia [Not Recovered/Not Resolved]

NARRATIVE: CASE EVENT DATE: 20151113
